FAERS Safety Report 19648436 (Version 6)
Quarter: 2021Q4

REPORT INFORMATION
  Report Type: Report from Study
  Country: BR (occurrence: BR)
  Receive Date: 20210802
  Receipt Date: 20211123
  Transmission Date: 20220303
  Serious: Yes (Hospitalization, Disabling)
  Sender: FDA-Public Use
  Company Number: NVSC2021BR169159

PATIENT
  Age: 27 Year
  Sex: Male
  Weight: 67.3 kg

DRUGS (6)
  1. CRIZANLIZUMAB [Suspect]
     Active Substance: CRIZANLIZUMAB
     Indication: Sickle cell disease
     Dosage: UNK
     Route: 042
     Dates: start: 20200203
  2. FOLIC ACID [Concomitant]
     Active Substance: FOLIC ACID
     Indication: General physical condition
     Dosage: UNK
     Route: 065
     Dates: start: 20130628
  3. DIPYRONE [Concomitant]
     Active Substance: DIPYRONE
     Indication: Arthralgia
     Dosage: UNK
     Route: 065
     Dates: start: 20210404
  4. AMOXICILLIN\CLAVULANATE POTASSIUM [Concomitant]
     Active Substance: AMOXICILLIN\CLAVULANATE POTASSIUM
     Indication: Cellulitis
     Dosage: UNK
     Route: 065
     Dates: start: 20210601, end: 20210601
  5. AMOXICILLIN\CLAVULANATE POTASSIUM [Concomitant]
     Active Substance: AMOXICILLIN\CLAVULANATE POTASSIUM
     Dosage: UNK
     Route: 065
     Dates: start: 20210602, end: 20210606
  6. HYDROXYUREA [Concomitant]
     Active Substance: HYDROXYUREA
     Indication: Sickle cell disease
     Dosage: UNK
     Route: 065
     Dates: start: 20191026

REACTIONS (1)
  - Abscess neck [Recovered/Resolved]

NARRATIVE: CASE EVENT DATE: 20210620
